FAERS Safety Report 21237094 (Version 1)
Quarter: 2022Q3

REPORT INFORMATION
  Report Type: Report from Study
  Country: SK (occurrence: SK)
  Receive Date: 20220822
  Receipt Date: 20220822
  Transmission Date: 20221026
  Serious: Yes (Death)
  Sender: FDA-Public Use
  Company Number: SK-TEVA-2022-SK-2065830

PATIENT
  Age: 48 Year
  Sex: Male

DRUGS (1)
  1. COPAXONE [Suspect]
     Active Substance: GLATIRAMER ACETATE
     Indication: Relapsing-remitting multiple sclerosis
     Dosage: COPAXONE 40 MG/ML
     Route: 058
     Dates: start: 20140101, end: 20220812

REACTIONS (1)
  - Myocardial infarction [Fatal]
